FAERS Safety Report 11118677 (Version 1)
Quarter: 2015Q2

REPORT INFORMATION
  Report Type: Spontaneous
  Country: BR (occurrence: BR)
  Receive Date: 20150518
  Receipt Date: 20150518
  Transmission Date: 20150821
  Serious: Yes (Other)
  Sender: FDA-Public Use
  Company Number: BR-009507513-1505BRA006642

PATIENT
  Age: 62 Year
  Sex: Male
  Weight: 87 kg

DRUGS (7)
  1. XARELTO [Concomitant]
     Active Substance: RIVAROXABAN
     Dosage: 10 MG, QAM
     Route: 048
     Dates: start: 2013
  2. JANUMET [Suspect]
     Active Substance: METFORMIN HYDROCHLORIDE\SITAGLIPTIN PHOSPHATE
     Indication: DIABETES MELLITUS
     Dosage: 50-850 MG QD
     Route: 048
     Dates: start: 2011
  3. LOSARTAN POTASSIUM. [Concomitant]
     Active Substance: LOSARTAN POTASSIUM
     Dosage: 50 MG, QAM
     Route: 048
     Dates: start: 2013
  4. ZOCOR [Suspect]
     Active Substance: SIMVASTATIN
     Dosage: 10 MG, QPM
     Route: 048
     Dates: start: 2013
  5. LASIX [Concomitant]
     Active Substance: FUROSEMIDE
     Dosage: UNK
     Dates: start: 2013
  6. XARELTO [Concomitant]
     Active Substance: RIVAROXABAN
     Dosage: 20 MG, QAM
     Route: 048
     Dates: start: 201505
  7. CARVEDILOL. [Concomitant]
     Active Substance: CARVEDILOL
     Dosage: 25 MG, Q12H
     Route: 048
     Dates: start: 2013

REACTIONS (2)
  - Cerebrovascular accident [Recovered/Resolved]
  - Blood glucose increased [Not Recovered/Not Resolved]

NARRATIVE: CASE EVENT DATE: 20150413
